FAERS Safety Report 8173445-4 (Version None)
Quarter: 2012Q1

REPORT INFORMATION
  Report Type: 
  Country: None (occurrence: None)
  Receive Date: 20120104
  Receipt Date: 20111207
  Transmission Date: 20120608
  Serious: No
  Sender: FDA-Public Use
  Company Number: 2011HGS-002930

PATIENT
  Age: 60 Year
  Sex: Female
  Weight: 70.7611 kg

DRUGS (16)
  1. ZOFRAN (ONDANSETRON HYDROCHLORIDE) (ONDANSETRON HYDROCHLORIDE) [Concomitant]
  2. BENLYSTA [Suspect]
     Indication: SYSTEMIC LUPUS ERYTHEMATOSUS
     Dosage: 1 IN 28 D, INTRAVENOUS DRIP
     Route: 041
     Dates: start: 20110818
  3. ZANTAC [Concomitant]
  4. GABAPENTIN [Concomitant]
  5. METHOTREXATE [Concomitant]
  6. BABY ASPIRIN (ACETYLSALICYLIC ACID) (ACETYLSALICYLIC ACID) [Concomitant]
  7. CALCIUM WITH VITAMIN D (CALCIUM WITH VITAMIN D) (ERGOCALCIFEROL, CALCI [Concomitant]
  8. TOPROL XL (METOPROLOL) (METOPROLOL) [Concomitant]
  9. TRAMADOL HCL [Concomitant]
  10. NEXIUM [Concomitant]
  11. PREDNISONE [Concomitant]
  12. ATTACAND HCT (BLOPRESS PLUS) (HYDROCHLOROTHIAZIDE, CANDESARTAN CILEXET [Concomitant]
  13. FOLIC ACID [Concomitant]
  14. LIDOCAINE [Concomitant]
  15. RECLAST (ZOLEDRONIC ACID) (ZOLEDRONIC ACID) [Concomitant]
  16. DURAGESIC (FENTANYL) (FENTANYL) [Concomitant]

REACTIONS (1)
  - HEADACHE [None]
